FAERS Safety Report 5440645-3 (Version None)
Quarter: 2007Q3

REPORT INFORMATION
  Report Type: 
  Country: None (occurrence: None)
  Receive Date: 20070831
  Receipt Date: 20070814
  Transmission Date: 20080115
  Serious: No
  Sender: FDA-Public Use
  Company Number: US-BOEHRINGER INGELHEIM PHARMACEUTICALS, INC.-2007-BP-19234BP

PATIENT
  Sex: Male

DRUGS (1)
  1. FLOMAX [Suspect]
     Indication: BENIGN PROSTATIC HYPERPLASIA
     Route: 048

REACTIONS (2)
  - BREAST SWELLING [None]
  - BREAST TENDERNESS [None]
